FAERS Safety Report 9715578 (Version 3)
Quarter: 2014Q1

REPORT INFORMATION
  Report Type: Report from Study
  Country: DE (occurrence: DE)
  Receive Date: 20131127
  Receipt Date: 20140114
  Transmission Date: 20141002
  Serious: Yes (Hospitalization)
  Sender: FDA-Public Use
  Company Number: DE-AMGEN-DEUCT2013083720

PATIENT
  Age: 55 Year
  Sex: Female
  Weight: 82 kg

DRUGS (5)
  1. ETANERCEPT [Suspect]
     Indication: PRODUCT USED FOR UNKNOWN INDICATION
     Dosage: 40 MG, WEEKLY
     Route: 065
     Dates: start: 201211
  2. BISOHEXAL [Concomitant]
     Indication: HYPERTENSION
     Dosage: 5 MG, UNK
  3. NOVORAPID [Concomitant]
     Indication: DIABETES MELLITUS
     Dosage: AT NIGHT ACCORDING TO VALUE
  4. LEVEMIR [Concomitant]
     Indication: DIABETES MELLITUS
     Dosage: AT NIGHT ACCORDING TO VALUE
  5. HEXAL [Concomitant]
     Indication: HYPERTENSION
     Dosage: 5 MG, UNK

REACTIONS (1)
  - Febrile infection [Recovered/Resolved]
